FAERS Safety Report 19377204 (Version 2)
Quarter: 2022Q2

REPORT INFORMATION
  Report Type: Report from Study
  Country: FR (occurrence: FR)
  Receive Date: 20210604
  Receipt Date: 20220630
  Transmission Date: 20220721
  Serious: Yes (Hospitalization, Other)
  Sender: FDA-Public Use
  Company Number: FR-TAKEDA-2021TUS034962

PATIENT
  Age: 11 Year
  Sex: Female

DRUGS (7)
  1. TEDUGLUTIDE [Suspect]
     Active Substance: TEDUGLUTIDE
     Indication: Short-bowel syndrome
     Dosage: 1.75 MILLIGRAM, 1 DOSE PER WEEK
     Route: 042
  2. TEDUGLUTIDE [Suspect]
     Active Substance: TEDUGLUTIDE
     Indication: Short-bowel syndrome
     Dosage: 1.75 MILLIGRAM, 1 DOSE PER WEEK
     Route: 042
  3. TEDUGLUTIDE [Suspect]
     Active Substance: TEDUGLUTIDE
     Indication: Short-bowel syndrome
     Dosage: 1.75 MILLIGRAM, 1 DOSE PER WEEK
     Route: 042
  4. TEDUGLUTIDE [Suspect]
     Active Substance: TEDUGLUTIDE
     Indication: Short-bowel syndrome
     Dosage: 1.75 MILLIGRAM, 1 DOSE PER WEEK
     Route: 042
  5. MONTMORILLONITE [Concomitant]
     Active Substance: MONTMORILLONITE
     Indication: Gastrointestinal disorder
     Dosage: 1 TAB, BID
     Route: 048
     Dates: start: 20170118
  6. IMODIUM [Concomitant]
     Active Substance: LOPERAMIDE HYDROCHLORIDE
     Indication: Intestinal transit time abnormal
     Dosage: 1 TAB, BID
     Route: 048
     Dates: start: 20170531
  7. URSODIOL [Concomitant]
     Active Substance: URSODIOL
     Indication: Cholangitis
     Dosage: 1 TAB, QD
     Route: 048
     Dates: start: 20170531

REACTIONS (1)
  - Puncture site infection [Recovered/Resolved]

NARRATIVE: CASE EVENT DATE: 20200622
